FAERS Safety Report 9251766 (Version 1)
Quarter: 2013Q1

REPORT INFORMATION
  Report Type: Spontaneous
  Country: US (occurrence: None)
  Receive Date: 20130305
  Receipt Date: 20130305
  Transmission Date: 20140127
  Serious: Yes (Hospitalization, Other)
  Sender: FDA-Public Use
  Company Number: 163-21880-12092665

PATIENT
  Age: 79 Year
  Sex: Female
  Weight: 72.58 kg

DRUGS (10)
  1. REVLIMID [Suspect]
     Indication: PLASMA CELL MYELOMA
     Dosage: 15MG, 21 IN 21 D,PO
     Route: 048
     Dates: start: 20120905
  2. TUMS (CALCIUM CARBONATE) [Concomitant]
  3. AMLODIPINE (AMLODIPINE) [Concomitant]
  4. ASPIRIN (ACETYLSALICYLIC ACID) [Concomitant]
  5. LORAZEPAM (LORAZEPAM) [Concomitant]
  6. ALPHAGAN (BRIMONIDINE TARTRATE) [Concomitant]
  7. COSOPT (COSOPT) [Concomitant]
  8. CARVEDILOL (CARVEDILOL) [Concomitant]
  9. ESOMEPRAZOLE (ESOMEPRAZOLE) [Concomitant]
  10. MIRALAX [Concomitant]

REACTIONS (1)
  - Gout [None]
